FAERS Safety Report 11849689 (Version 16)
Quarter: 2017Q3

REPORT INFORMATION
  Report Type: Report from Study
  Country: US (occurrence: US)
  Receive Date: 20151218
  Receipt Date: 20170829
  Transmission Date: 20171127
  Serious: Yes (Death, Hospitalization, Other)
  Sender: FDA-Public Use
  Company Number: US-BAYER-2015-022170

PATIENT
  Age: 55 Year
  Sex: Female
  Weight: 79.37 kg

DRUGS (18)
  1. ADEMPAS [Suspect]
     Active Substance: RIOCIGUAT
     Indication: PULMONARY ARTERIAL HYPERTENSION
     Dosage: 2.5 MG, TID
     Route: 048
  2. ADEMPAS [Suspect]
     Active Substance: RIOCIGUAT
     Indication: PULMONARY ARTERIAL HYPERTENSION
     Dosage: 2.5 MG, TID
     Route: 048
  3. ADEMPAS [Suspect]
     Active Substance: RIOCIGUAT
     Indication: PULMONARY ARTERIAL HYPERTENSION
     Dosage: 2.5 MG, TID
     Route: 048
  4. ADEMPAS [Suspect]
     Active Substance: RIOCIGUAT
     Indication: PULMONARY ARTERIAL HYPERTENSION
     Dosage: 2.5 MG, TID
     Route: 048
     Dates: start: 20150608
  5. ADEMPAS [Suspect]
     Active Substance: RIOCIGUAT
     Indication: PULMONARY ARTERIAL HYPERTENSION
     Dosage: 2.5 MG, TID
     Route: 048
  6. ADEMPAS [Suspect]
     Active Substance: RIOCIGUAT
     Indication: PULMONARY ARTERIAL HYPERTENSION
     Dosage: 2.5 MG, TID
     Route: 048
  7. REMODULIN [Suspect]
     Active Substance: TREPROSTINIL
     Dosage: UNK
  8. ADEMPAS [Suspect]
     Active Substance: RIOCIGUAT
     Indication: PULMONARY ARTERIAL HYPERTENSION
     Dosage: UNK
     Dates: start: 20140115
  9. REMODULIN [Suspect]
     Active Substance: TREPROSTINIL
     Dosage: INCREASED DOSE
  10. ADEMPAS [Suspect]
     Active Substance: RIOCIGUAT
     Indication: PULMONARY ARTERIAL HYPERTENSION
     Dosage: 2.5 MG, TID
     Route: 048
  11. ADEMPAS [Suspect]
     Active Substance: RIOCIGUAT
     Indication: PULMONARY ARTERIAL HYPERTENSION
     Dosage: 2.5 MG, TID
     Route: 048
  12. LETAIRIS [Concomitant]
     Active Substance: AMBRISENTAN
     Dosage: 5 MG, UNK
  13. COUMADIN [Concomitant]
     Active Substance: WARFARIN SODIUM
     Dosage: 5 MG, QD
  14. WARFARIN [Concomitant]
     Active Substance: WARFARIN
     Dosage: UNK
  15. ADEMPAS [Suspect]
     Active Substance: RIOCIGUAT
     Indication: PULMONARY ARTERIAL HYPERTENSION
     Dosage: 2.5 MG, TID
     Route: 048
  16. ARIXTRA [Concomitant]
     Active Substance: FONDAPARINUX SODIUM
     Dosage: UNK
  17. ADEMPAS [Suspect]
     Active Substance: RIOCIGUAT
     Indication: PULMONARY ARTERIAL HYPERTENSION
     Dosage: 2.5 MG, TID
     Route: 048
  18. ADEMPAS [Suspect]
     Active Substance: RIOCIGUAT
     Indication: PULMONARY ARTERIAL HYPERTENSION
     Dosage: 2.5 MG, TID
     Route: 048

REACTIONS (48)
  - Heart rate increased [Unknown]
  - Nausea [None]
  - Vomiting [None]
  - Pain in extremity [Unknown]
  - Pulmonary arterial hypertension [None]
  - Pain in extremity [None]
  - Pain [Unknown]
  - Accidental overdose [None]
  - Depressed mood [Unknown]
  - Injection site haemorrhage [Unknown]
  - Catheter site pain [Unknown]
  - Hospitalisation [None]
  - Hypertension [Unknown]
  - Palpitations [Unknown]
  - Peripheral swelling [Unknown]
  - Nausea [Unknown]
  - Aphasia [None]
  - Nausea [Unknown]
  - Weight increased [None]
  - Acute respiratory failure [Unknown]
  - Vomiting [Unknown]
  - Oedema peripheral [None]
  - Right ventricular failure [Fatal]
  - Deep vein thrombosis [Unknown]
  - Hospitalisation [Not Recovered/Not Resolved]
  - Feeling abnormal [None]
  - Hospitalisation [Unknown]
  - Swelling [Unknown]
  - Peripheral swelling [None]
  - Tachycardia [Unknown]
  - Dehydration [Unknown]
  - Nausea [Unknown]
  - Subcutaneous haematoma [Unknown]
  - Hospitalisation [None]
  - Generalised oedema [None]
  - Ecchymosis [None]
  - Application site warmth [None]
  - Application site erythema [None]
  - Haematoma [Unknown]
  - Joint swelling [Unknown]
  - Dyspnoea [Unknown]
  - Drug dose omission [None]
  - Dizziness [None]
  - Swelling [Unknown]
  - Vomiting [Unknown]
  - Vomiting [Unknown]
  - Diarrhoea [Unknown]
  - Cardiac failure congestive [None]

NARRATIVE: CASE EVENT DATE: 20150414
